FAERS Safety Report 14310086 (Version 1)
Quarter: 2017Q4

REPORT INFORMATION
  Report Type: Spontaneous
  Country: IT (occurrence: IT)
  Receive Date: 20171220
  Receipt Date: 20171220
  Transmission Date: 20180321
  Serious: Yes (Hospitalization)
  Sender: FDA-Public Use
  Company Number: IT-BAYER-2017-242205

PATIENT
  Age: 76 Year
  Sex: Female

DRUGS (3)
  1. CARDIOASPIRIN 100 MG [Suspect]
     Active Substance: ASPIRIN
     Dosage: 100 MG, UNK
     Route: 048
  2. XARELTO [Suspect]
     Active Substance: RIVAROXABAN
     Indication: ATRIAL FIBRILLATION
     Route: 048
  3. PROPAFENONE. [Concomitant]
     Active Substance: PROPAFENONE
     Route: 048

REACTIONS (2)
  - Atrial fibrillation [Recovered/Resolved]
  - Microcytic anaemia [Recovered/Resolved]

NARRATIVE: CASE EVENT DATE: 20171002
